FAERS Safety Report 9966098 (Version 1)
Quarter: 2014Q1

REPORT INFORMATION
  Report Type: Report from Study
  Country: US (occurrence: US)
  Receive Date: 20140305
  Receipt Date: 20140305
  Transmission Date: 20141002
  Serious: No
  Sender: FDA-Public Use
  Company Number: US-ABBVIE-13P-163-1122952-00

PATIENT
  Age: 30 Year
  Sex: Female

DRUGS (3)
  1. HUMIRA [Suspect]
     Indication: COLITIS ULCERATIVE
     Dates: start: 20130711, end: 20130711
  2. HUMIRA [Suspect]
  3. UCERIS [Concomitant]
     Indication: COLITIS ULCERATIVE
     Dosage: 9 MG DAILY
     Route: 048

REACTIONS (1)
  - Rash pruritic [Not Recovered/Not Resolved]
